FAERS Safety Report 7028196-6 (Version None)
Quarter: 2010Q4

REPORT INFORMATION
  Report Type: 
  Country: None (occurrence: None)
  Receive Date: 20101005
  Receipt Date: 20100929
  Transmission Date: 20110411
  Serious: Yes (Other)
  Sender: FDA-Public Use
  Company Number: BR-SANOFI-AVENTIS-2010SA058684

PATIENT
  Age: 59 Year
  Sex: Male
  Weight: 76 kg

DRUGS (8)
  1. BLINDED THERAPY [Suspect]
     Indication: PROSTATE CANCER METASTATIC
     Route: 042
     Dates: start: 20090114, end: 20090114
  2. BLINDED THERAPY [Suspect]
     Route: 042
     Dates: start: 20090408, end: 20090408
  3. DOCETAXEL [Suspect]
     Indication: PROSTATE CANCER METASTATIC
     Route: 042
     Dates: start: 20090114, end: 20090114
  4. DOCETAXEL [Suspect]
     Route: 042
     Dates: start: 20090430, end: 20090430
  5. PREDNISONE [Suspect]
     Indication: PROSTATE CANCER METASTATIC
     Route: 048
     Dates: start: 20090114, end: 20090511
  6. ZOLADEX [Concomitant]
     Dates: start: 20080625
  7. HYDROCHLOROTHIAZIDE [Concomitant]
     Dates: start: 20010101
  8. AMILORIDE HYDROCHLORIDE [Concomitant]
     Dates: start: 20010101

REACTIONS (1)
  - REVERSIBLE POSTERIOR LEUKOENCEPHALOPATHY SYNDROME [None]
